FAERS Safety Report 15265275 (Version 1)
Quarter: 2018Q3

REPORT INFORMATION
  Report Type: Spontaneous
  Country: US (occurrence: US)
  Receive Date: 20180723
  Receipt Date: 20180723
  Transmission Date: 20181010
  Serious: Yes (Other)
  Sender: FDA-Public Use
  Company Number: None

PATIENT
  Age: 63 Year
  Sex: Female
  Weight: 58.5 kg

DRUGS (7)
  1. ZOMIG [Concomitant]
     Active Substance: ZOLMITRIPTAN
  2. VITAMIN B12 [Concomitant]
     Active Substance: CYANOCOBALAMIN
  3. LINZESS [Suspect]
     Active Substance: LINACLOTIDE
     Indication: PRODUCT USED FOR UNKNOWN INDICATION
     Dosage: ?          OTHER STRENGTH:MCG;QUANTITY:1 CAPSULE(S);?
     Route: 048
     Dates: start: 20180701, end: 20180723
  4. AZELASINE HYDROCHOLRIDE [Concomitant]
  5. RANITIDINE. [Concomitant]
     Active Substance: RANITIDINE
  6. VITAMIN D3 [Concomitant]
     Active Substance: CHOLECALCIFEROL
  7. TRIAMCINOLONE ACETONIDE + PREDNISOLONE [Concomitant]

REACTIONS (6)
  - Pruritus [None]
  - Cheilitis [None]
  - Pharyngeal oedema [None]
  - Stomatitis [None]
  - Dysphonia [None]
  - Therapy change [None]

NARRATIVE: CASE EVENT DATE: 20180723
